FAERS Safety Report 7205960-1 (Version None)
Quarter: 2011Q1

REPORT INFORMATION
  Report Type: 
  Country: None (occurrence: None)
  Receive Date: 20110103
  Receipt Date: 20101223
  Transmission Date: 20110831
  Serious: No
  Sender: FDA-Public Use
  Company Number: US-BIOGENIDEC-2010BI040301

PATIENT
  Age: 57 Year
  Sex: Female

DRUGS (1)
  1. TYSABRI [Suspect]
     Indication: MULTIPLE SCLEROSIS
     Route: 042
     Dates: start: 20101019

REACTIONS (5)
  - HEADACHE [None]
  - HERPES ZOSTER [None]
  - EYE INFECTION STAPHYLOCOCCAL [None]
  - EYE INFECTION [None]
  - HERPES ZOSTER OPHTHALMIC [None]
